FAERS Safety Report 17268441 (Version 1)
Quarter: 2020Q1

REPORT INFORMATION
  Report Type: Spontaneous
  Country: US (occurrence: US)
  Receive Date: 20200114
  Receipt Date: 20200114
  Transmission Date: 20200409
  Serious: Yes (Other)
  Sender: FDA-Public Use
  Company Number: None

PATIENT
  Age: 32 Year
  Sex: Male

DRUGS (2)
  1. ADDERALL [Suspect]
     Active Substance: AMPHETAMINE ASPARTATE\AMPHETAMINE SULFATE\DEXTROAMPHETAMINE SACCHARATE\DEXTROAMPHETAMINE SULFATE
  2. BENZEDREX [Suspect]
     Active Substance: PROPYLHEXEDRINE
     Indication: PRODUCT SUBSTITUTION
     Dosage: ?          QUANTITY:1 INHALATION(S);?
     Route: 048
     Dates: start: 20190501

REACTIONS (7)
  - Homeless [None]
  - Aggression [None]
  - Drug dependence [None]
  - Disturbance in attention [None]
  - Hallucination [None]
  - Product complaint [None]
  - Paranoia [None]

NARRATIVE: CASE EVENT DATE: 20190501
